FAERS Safety Report 21897288 (Version 3)
Quarter: 2023Q1

REPORT INFORMATION
  Report Type: Spontaneous
  Country: US (occurrence: US)
  Receive Date: 20230123
  Receipt Date: 20230310
  Transmission Date: 20230418
  Serious: Yes (Hospitalization)
  Sender: FDA-Public Use
  Company Number: US-NIPPON SHINYAKU-NIP-2022-000069

PATIENT
  Age: 13 Year
  Sex: Male
  Weight: 28.12 kg

DRUGS (7)
  1. VILTEPSO [Suspect]
     Active Substance: VILTOLARSEN
     Indication: Duchenne muscular dystrophy
     Dosage: 2144 MG, QWK
     Route: 042
     Dates: start: 20221130, end: 20221130
  2. VILTEPSO [Suspect]
     Active Substance: VILTOLARSEN
     Dosage: 2144 MG, QWK
     Route: 042
     Dates: start: 20221207, end: 20221207
  3. VILTEPSO [Suspect]
     Active Substance: VILTOLARSEN
     Dosage: 2144 MG, QWK
     Route: 042
     Dates: start: 20221214, end: 20221214
  4. VILTEPSO [Suspect]
     Active Substance: VILTOLARSEN
     Dosage: 2144 MG
     Route: 042
     Dates: start: 20230119
  5. ENALAPRIL MALEATE [Concomitant]
     Active Substance: ENALAPRIL MALEATE
     Indication: Product used for unknown indication
     Dosage: 2.5 UNK, Q12H
     Route: 065
  6. PREDNISONE [Concomitant]
     Active Substance: PREDNISONE
     Indication: Product used for unknown indication
     Dosage: 20 MG
     Route: 048
  7. TOBRADEX [Concomitant]
     Active Substance: DEXAMETHASONE\TOBRAMYCIN
     Indication: Product used for unknown indication
     Dosage: UNK
     Route: 065

REACTIONS (1)
  - Upper respiratory tract infection [Recovered/Resolved]

NARRATIVE: CASE EVENT DATE: 20221218
